FAERS Safety Report 13374285 (Version 3)
Quarter: 2017Q2

REPORT INFORMATION
  Report Type: Report from Study
  Country: GB (occurrence: GB)
  Receive Date: 20170327
  Receipt Date: 20170523
  Transmission Date: 20170830
  Serious: Yes (Other)
  Sender: FDA-Public Use
  Company Number: GB-JNJFOC-20170326027

PATIENT
  Age: 48 Year
  Sex: Female

DRUGS (3)
  1. AMOXICILLIN. [Concomitant]
     Active Substance: AMOXICILLIN
     Dosage: FOR ABOUT 3 WEEKS.
     Route: 065
     Dates: start: 20170331
  2. STELARA [Suspect]
     Active Substance: USTEKINUMAB
     Indication: PSORIASIS
     Route: 058
  3. ERYTHROMYCIN. [Concomitant]
     Active Substance: ERYTHROMYCIN
     Route: 065
     Dates: start: 20170323, end: 20170330

REACTIONS (1)
  - Breast abscess [Recovered/Resolved]

NARRATIVE: CASE EVENT DATE: 20170323
